FAERS Safety Report 4830626-2 (Version None)
Quarter: 2005Q4

REPORT INFORMATION
  Report Type: 
  Country: None (occurrence: None)
  Receive Date: 20051114
  Receipt Date: 20051027
  Transmission Date: 20060501
  Serious: Yes (Other)
  Sender: FDA-Public Use
  Company Number: 430002L05ITA

PATIENT
  Age: 53 Year
  Sex: Male

DRUGS (1)
  1. NOVANTRONE [Suspect]
     Indication: MULTIPLE SCLEROSIS
     Dosage: 10MG/M2
     Dates: start: 19990101, end: 20020718

REACTIONS (1)
  - EJECTION FRACTION DECREASED [None]
